FAERS Safety Report 7099039-X (Version None)
Quarter: 2010Q4

REPORT INFORMATION
  Report Type: 
  Country: None (occurrence: None)
  Receive Date: 20101112
  Receipt Date: 20101108
  Transmission Date: 20110411
  Serious: Yes (Other)
  Sender: FDA-Public Use
  Company Number: A0891591A

PATIENT
  Age: 28 Year
  Sex: Female

DRUGS (1)
  1. ABREVA [Suspect]
     Route: 061
     Dates: start: 20101101

REACTIONS (4)
  - APHASIA [None]
  - CONDITION AGGRAVATED [None]
  - HYPOAESTHESIA ORAL [None]
  - ILL-DEFINED DISORDER [None]
